FAERS Safety Report 9316327 (Version 2)
Quarter: 2013Q2

REPORT INFORMATION
  Report Type: Spontaneous
  Country: US (occurrence: None)
  Receive Date: 20121206
  Receipt Date: 20130507
  Transmission Date: 20140414
  Serious: Yes (Other)
  Sender: FDA-Public Use
  Company Number: ADR-2011-11162

PATIENT
  Sex: Male

DRUGS (4)
  1. BACLOFEN INTRATHECAL [Suspect]
     Indication: PAIN
  2. CLONIDINE [Concomitant]
  3. DILAUDID (HYDROMORPHONE) [Concomitant]
  4. MARCAINE (BUPIVACAINE) [Concomitant]

REACTIONS (9)
  - Device failure [None]
  - Adverse drug reaction [None]
  - Nausea [None]
  - Vomiting [None]
  - Malaise [None]
  - Hyperhidrosis [None]
  - Feeling abnormal [None]
  - Pain [None]
  - Retching [None]
